FAERS Safety Report 10866312 (Version 2)
Quarter: 2015Q2

REPORT INFORMATION
  Report Type: Report from Study
  Country: US (occurrence: US)
  Receive Date: 20150225
  Receipt Date: 20150609
  Transmission Date: 20150821
  Serious: Yes (Other)
  Sender: FDA-Public Use
  Company Number: US-BEH-2015049040

PATIENT
  Age: 51 Year
  Sex: Male

DRUGS (1)
  1. HIZENTRA [Suspect]
     Active Substance: HUMAN IMMUNOGLOBULIN G
     Indication: IMMUNODEFICIENCY COMMON VARIABLE
     Dosage: ??-???-2014 TO ??-???-2014
     Route: 058

REACTIONS (1)
  - Thyroidectomy [Recovered/Resolved]

NARRATIVE: CASE EVENT DATE: 20140529
